FAERS Safety Report 9515521 (Version 1)
Quarter: 2013Q1

REPORT INFORMATION
  Report Type: Spontaneous
  Country: US (occurrence: None)
  Receive Date: 20130305
  Receipt Date: 20130305
  Transmission Date: 20140127
  Serious: Yes (Other)
  Sender: FDA-Public Use
  Company Number: 163-21880-12102853

PATIENT
  Age: 62 Year
  Sex: Male

DRUGS (20)
  1. REVLIMID [Suspect]
     Indication: PLASMA CELL MYELOMA
     Dosage: 25 MG, 1 IN 1 D, PO
     Route: 048
     Dates: start: 20120215
  2. METOPROLOL TARTRATE (METOPROLOL TARTRATE) (UNKNOWN) [Concomitant]
  3. MORPHINE SULFATE (MORPHINE SULFATE) (CAPSULES) [Concomitant]
  4. HYDROCHLOROTHIAZIDE (HYDROCHLOROTHIAZIDE) (UNKNOWN)? [Concomitant]
  5. DEXAMETHASONE (DEXAMEHTASONE) (TABLETS) [Concomitant]
  6. HYDROCODONE/ACETAMINOPHEN (REMEDEINE) (UNKNOWN) [Concomitant]
  7. PROCRIT [Concomitant]
  8. IPRATROPIUM (IPRATROPIUM) (SOLUTION) [Concomitant]
  9. VITAMIN B12 (CYANOCOBALAMIN) (TABLETS) [Concomitant]
  10. ZOLPIDEM (ZOLPIDEM) (TABLETS) [Concomitant]
  11. QVAR (BECLOMETASONE DIPROPIONATE) (AEROSOL FOR INHALATION)? [Concomitant]
  12. COMBIVENT (COMBIVENT) (INHALANT)? [Concomitant]
  13. ALBUTEROL (SALBUTAMOL) (UNKNOWN) [Concomitant]
  14. DOXAZOSIN (DOXAZOSIN) (TABLETS) [Concomitant]
  15. CLONIDINE (CLONIDINE) (UNKNOWN) [Concomitant]
  16. AMOXICILLIN (AMOXICILLIN) (CAPSULES)? [Concomitant]
  17. FOLIC ACID (FOLIC ACID) (TABLETS) [Concomitant]
  18. AMLODIPINE BESYLATE (AMLODIPINE BESILATE) (UNKNOWN)? [Concomitant]
  19. CYCLOBENZAPRINE (CYCLOBENZAPRINE) (TABLETS) [Concomitant]
  20. ASPIRIN (ACETYLSALICYLIC ACID) (TABLETS) [Concomitant]

REACTIONS (2)
  - White blood cell count decreased [None]
  - Platelet count decreased [None]
